FAERS Safety Report 24985180 (Version 2)
Quarter: 2025Q1

REPORT INFORMATION
  Report Type: Spontaneous
  Country: ES (occurrence: ES)
  Receive Date: 20250219
  Receipt Date: 20250304
  Transmission Date: 20250408
  Serious: Yes (Other)
  Sender: AUROBINDO
  Company Number: ES-AUROBINDO-AUR-APL-2025-008425

PATIENT
  Age: 12 Year
  Sex: Female

DRUGS (3)
  1. IBUPROFEN [Suspect]
     Active Substance: IBUPROFEN
     Indication: Symptomatic treatment
     Route: 065
  2. IBUPROFEN [Suspect]
     Active Substance: IBUPROFEN
     Indication: Respiratory tract infection
  3. PREDNISONE [Concomitant]
     Active Substance: PREDNISONE
     Indication: COVID-19
     Route: 065

REACTIONS (1)
  - Tubulointerstitial nephritis and uveitis syndrome [Unknown]
